FAERS Safety Report 10353242 (Version 2)
Quarter: 2014Q3

REPORT INFORMATION
  Report Type: Spontaneous
  Country: IT (occurrence: IT)
  Receive Date: 20140730
  Receipt Date: 20140730
  Transmission Date: 20150326
  Serious: Yes (Other)
  Sender: FDA-Public Use
  Company Number: PHHY2014IT049310

PATIENT
  Sex: Female

DRUGS (1)
  1. OLANZAPINE. [Suspect]
     Active Substance: OLANZAPINE
     Dosage: 10 MG, ONCE/SINGLE
     Route: 048
     Dates: start: 20140306, end: 20140306

REACTIONS (2)
  - Accidental exposure to product [Recovering/Resolving]
  - Psychomotor skills impaired [Recovering/Resolving]

NARRATIVE: CASE EVENT DATE: 20140306
